FAERS Safety Report 5101839-X (Version None)
Quarter: 2006Q3

REPORT INFORMATION
  Report Type: 
  Country: None (occurrence: None)
  Receive Date: 20060731
  Receipt Date: 20060620
  Transmission Date: 20061208
  Serious: No
  Sender: FDA-Public Use
  Company Number: 2006PV016048

PATIENT
  Age: 63 Year
  Sex: Female
  Weight: 93.441 kg

DRUGS (5)
  1. BYETTA [Suspect]
     Indication: WEIGHT DECREASED
     Dosage: 10 MCG; BID; SC
     Route: 058
     Dates: start: 20060430, end: 20060601
  2. SYNTHROID [Concomitant]
  3. CYTOMEL [Concomitant]
  4. LIPITOR [Concomitant]
  5. BENECER [Concomitant]

REACTIONS (9)
  - ASTHENIA [None]
  - DIZZINESS [None]
  - FATIGUE [None]
  - NAUSEA [None]
  - OFF LABEL USE [None]
  - SOMNOLENCE [None]
  - TREMOR [None]
  - VOMITING [None]
  - WEIGHT DECREASED [None]
